FAERS Safety Report 6596970-6 (Version None)
Quarter: 2010Q1

REPORT INFORMATION
  Report Type: 
  Country: None (occurrence: None)
  Receive Date: 20100222
  Receipt Date: 20100222
  Transmission Date: 20100710
  Serious: Yes (Life-Threatening, Hospitalization)
  Sender: FDA-Public Use
  Company Number: None

PATIENT
  Age: 85 Year
  Sex: Male
  Weight: 68.0396 kg

DRUGS (7)
  1. QUETIAPINE FUMARATE [Suspect]
     Indication: AFFECTIVE DISORDER
     Dosage: 1/2 TABLET TWICE DAILY PO
     Route: 048
     Dates: start: 20100111, end: 20100114
  2. CLINDAMYCIN [Concomitant]
  3. MOXIFLOXACIN HCL [Concomitant]
  4. FLOMAX [Concomitant]
  5. METFORMIN HYDROCHLORIDE [Concomitant]
  6. FINASTERIDE [Concomitant]
  7. GLIPIZIDE [Concomitant]

REACTIONS (5)
  - BLOOD GLUCOSE ABNORMAL [None]
  - BLOOD POTASSIUM INCREASED [None]
  - BLOOD PRESSURE DECREASED [None]
  - MOVEMENT DISORDER [None]
  - SOMNOLENCE [None]
